FAERS Safety Report 4379779-3 (Version None)
Quarter: 2004Q2

REPORT INFORMATION
  Report Type: 
  Country: None (occurrence: None)
  Receive Date: 20040614
  Receipt Date: 20040603
  Transmission Date: 20050107
  Serious: Yes (Hospitalization)
  Sender: FDA-Public Use
  Company Number: STA-AE-04-MTX-251

PATIENT
  Age: 67 Year
  Sex: Male

DRUGS (7)
  1. METHOTREXATE [Suspect]
     Indication: RHEUMATOID ARTHRITIS
     Dosage: 7.5 MG 1X PER 1 WK, ORAL
     Route: 048
     Dates: start: 19940101, end: 20040524
  2. NOLOTIL/SPA/ (METAMIZOLE MAGNESIUM) [Concomitant]
  3. TORSEMIDE [Concomitant]
  4. IBUPROFEN [Concomitant]
  5. FINASTERIDE [Concomitant]
  6. CORTICOSTEROID NOS (CORTICOSTEROID NOS) [Concomitant]
  7. DEFLAZACORT (DEFLAZACORT) [Concomitant]

REACTIONS (9)
  - BONE MARROW DEPRESSION [None]
  - DRUG LEVEL INCREASED [None]
  - EPISTAXIS [None]
  - FOOT OPERATION [None]
  - HAEMORRHAGE URINARY TRACT [None]
  - IMPAIRED HEALING [None]
  - MUCOSAL INFLAMMATION [None]
  - PETECHIAE [None]
  - RENAL FAILURE ACUTE [None]
